FAERS Safety Report 23023632 (Version 3)
Quarter: 2023Q4

REPORT INFORMATION
  Report Type: Spontaneous
  Country: US (occurrence: US)
  Receive Date: 20231003
  Receipt Date: 20231106
  Transmission Date: 20240110
  Serious: Yes (Hospitalization, Other)
  Sender: FDA-Public Use
  Company Number: US-PFIZER INC-PV202300163209

PATIENT
  Age: 86 Year
  Sex: Female
  Weight: 71.565 kg

DRUGS (1)
  1. IBRANCE [Suspect]
     Active Substance: PALBOCICLIB
     Indication: Breast cancer metastatic
     Dosage: DAILY, TAKE FROM DAY 1-21, EVERY 28 DAYS
     Route: 048
     Dates: start: 20190228

REACTIONS (6)
  - Viral infection [Unknown]
  - Thrombocytopenia [Unknown]
  - Pancytopenia [Unknown]
  - Neutropenia [Unknown]
  - Illness [Unknown]
  - Anaemia [Unknown]

NARRATIVE: CASE EVENT DATE: 20230801
